FAERS Safety Report 16112186 (Version 1)
Quarter: 2019Q1

REPORT INFORMATION
  Report Type: Spontaneous
  Country: FR (occurrence: FR)
  Receive Date: 20190325
  Receipt Date: 20190325
  Transmission Date: 20190418
  Serious: Yes (Hospitalization)
  Sender: FDA-Public Use
  Company Number: FR-JNJFOC-20190325599

PATIENT
  Age: 74 Year
  Sex: Male
  Weight: 90 kg

DRUGS (1)
  1. ZYTIGA [Suspect]
     Active Substance: ABIRATERONE ACETATE
     Indication: PROSTATE CANCER
     Route: 048
     Dates: start: 201901, end: 201903

REACTIONS (3)
  - Ejection fraction decreased [Not Recovered/Not Resolved]
  - Cardiac failure [Not Recovered/Not Resolved]
  - Acute pulmonary oedema [Not Recovered/Not Resolved]

NARRATIVE: CASE EVENT DATE: 201903
